FAERS Safety Report 6093355-6 (Version None)
Quarter: 2009Q1

REPORT INFORMATION
  Report Type: 
  Country: None (occurrence: None)
  Receive Date: 20090220
  Receipt Date: 20090213
  Transmission Date: 20090719
  Serious: Yes (Death, Other)
  Sender: FDA-Public Use
  Company Number: ADE2009-0458

PATIENT
  Age: 93 Year
  Sex: Female

DRUGS (5)
  1. CIPROFLOXACIN [Suspect]
     Indication: URINARY TRACT INFECTION
     Dosage: ORAL
     Route: 048
  2. ASPIRIN [Concomitant]
  3. ISOSORBIDE DINITRATE [Concomitant]
  4. RAMIPRIL [Concomitant]
  5. OPIOID ANALGESIA [Concomitant]

REACTIONS (1)
  - TOXIC EPIDERMAL NECROLYSIS [None]
